FAERS Safety Report 22607284 (Version 1)
Quarter: 2023Q2

REPORT INFORMATION
  Report Type: Spontaneous
  Country: US (occurrence: None)
  Receive Date: 20230615
  Receipt Date: 20230615
  Transmission Date: 20230722
  Serious: No
  Sender: FDA-Public Use
  Company Number: 2023A132711

PATIENT
  Age: 920 Month

DRUGS (2)
  1. SYMBICORT [Suspect]
     Active Substance: BUDESONIDE\FORMOTEROL FUMARATE DIHYDRATE
     Indication: Irregular breathing
     Dosage: 160 UG TWO TIMES A DAY
     Route: 055
     Dates: start: 202304
  2. SYMBICORT [Suspect]
     Active Substance: BUDESONIDE\FORMOTEROL FUMARATE DIHYDRATE
     Indication: Cough
     Dosage: 160 UG TWO TIMES A DAY
     Route: 055
     Dates: start: 202304

REACTIONS (3)
  - Dyspnoea [Unknown]
  - Product communication issue [Unknown]
  - Device malfunction [Unknown]

NARRATIVE: CASE EVENT DATE: 20230401
